FAERS Safety Report 9364921 (Version 4)
Quarter: 2013Q3

REPORT INFORMATION
  Report Type: Spontaneous
  Country: US (occurrence: US)
  Receive Date: 20130624
  Receipt Date: 20130821
  Transmission Date: 20140515
  Serious: Yes (Death, Other)
  Sender: FDA-Public Use
  Company Number: US-BAXTER-2013BAX021541

PATIENT
  Age: 59 Year
  Sex: Female

DRUGS (1)
  1. DIANEAL LOW CALCIUM [Suspect]
     Indication: PERITONEAL DIALYSIS
     Dosage: STARTED 2 1/2 YRS AGO, 12 LITERS TOTAL FILL
     Route: 033
     Dates: end: 20130727

REACTIONS (5)
  - Death [Fatal]
  - Thrombosis [Recovering/Resolving]
  - Blood pressure immeasurable [Recovered/Resolved]
  - Blister rupture [Not Recovered/Not Resolved]
  - Fluid retention [Not Recovered/Not Resolved]
